FAERS Safety Report 8192763-7 (Version None)
Quarter: 2012Q1

REPORT INFORMATION
  Report Type: 
  Country: None (occurrence: None)
  Receive Date: 20120308
  Receipt Date: 20120229
  Transmission Date: 20120608
  Serious: No
  Sender: FDA-Public Use
  Company Number: US-PFIZER INC-2012054210

PATIENT
  Sex: Female

DRUGS (1)
  1. LATANOPROST [Suspect]
     Indication: GLAUCOMA
     Dosage: 1 GTT OU QHS
     Route: 047
     Dates: start: 20111228, end: 20120101

REACTIONS (3)
  - DIZZINESS [None]
  - COUGH [None]
  - ARTHRALGIA [None]
